FAERS Safety Report 15506154 (Version 2)
Quarter: 2018Q4

REPORT INFORMATION
  Report Type: Report from Study
  Country: CN (occurrence: CN)
  Receive Date: 20181016
  Receipt Date: 20181102
  Transmission Date: 20190205
  Serious: Yes (Death, Other)
  Sender: FDA-Public Use
  Company Number: CN-ROCHE-1974852

PATIENT
  Age: 45 Year
  Sex: Male
  Weight: 69 kg

DRUGS (1)
  1. ERLOTINIB [Suspect]
     Active Substance: ERLOTINIB
     Indication: NON-SMALL CELL LUNG CANCER
     Dosage: MOST RECENT DOSE RECEIVED ON 11/MAY/2017 PRIOR TO LIVER DAMAGE?MOST RECENT DOSE RECEIVED ON 02/FEB/2
     Route: 048
     Dates: start: 20170420

REACTIONS (2)
  - Respiratory failure [Fatal]
  - Liver injury [Unknown]

NARRATIVE: CASE EVENT DATE: 20170511
